FAERS Safety Report 7325962-4 (Version None)
Quarter: 2011Q1

REPORT INFORMATION
  Report Type: 
  Country: None (occurrence: None)
  Receive Date: 20110218
  Receipt Date: 20110119
  Transmission Date: 20110831
  Serious: Yes (Other)
  Sender: FDA-Public Use
  Company Number: JPI-P-002942

PATIENT
  Age: 77 Year
  Sex: Female

DRUGS (13)
  1. ASPIRIN [Concomitant]
  2. ACETAMINOPHEN [Concomitant]
  3. AMLODIPINE BESYLATE [Concomitant]
  4. VITAMIN D [Concomitant]
  5. TRANDOLAPRIL [Concomitant]
  6. XYREM [Suspect]
     Indication: CATAPLEXY
     Dosage: 4.5 GM (2.25 GM, 2 IN 1 D), 6 GM (3 GM, 2 IN 1 D) ORAL
     Route: 048
     Dates: start: 20071030, end: 20071101
  7. XYREM [Suspect]
     Indication: CATAPLEXY
     Dosage: 4.5 GM (2.25 GM, 2 IN 1 D), 6 GM (3 GM, 2 IN 1 D) ORAL
     Route: 048
     Dates: start: 20100225, end: 20110101
  8. XYREM [Suspect]
     Indication: CATAPLEXY
     Dosage: 4.5 GM (2.25 GM, 2 IN 1 D), 6 GM (3 GM, 2 IN 1 D) ORAL
     Route: 048
     Dates: start: 20071101, end: 20090201
  9. PRAMIPEXOLE [Concomitant]
  10. MULTI-VITAMIN [Concomitant]
  11. APO-HYDROCHLOROTHIAZIDE [Concomitant]
  12. IBUPROFEN [Concomitant]
  13. TOLTERODINE TARTRATE [Concomitant]

REACTIONS (5)
  - NAUSEA [None]
  - CONDITION AGGRAVATED [None]
  - WEIGHT DECREASED [None]
  - SOCIAL AVOIDANT BEHAVIOUR [None]
  - HALLUCINATION, VISUAL [None]
